FAERS Safety Report 23534968 (Version 1)
Quarter: 2024Q1

REPORT INFORMATION
  Report Type: Spontaneous
  Country: US (occurrence: US)
  Receive Date: 20240217
  Receipt Date: 20240217
  Transmission Date: 20240410
  Serious: Yes (Death)
  Sender: FDA-Public Use
  Company Number: US-SANDOZ-SDZ2024US014733

PATIENT
  Age: 52 Year
  Sex: Male

DRUGS (1)
  1. HEPARIN [Suspect]
     Active Substance: HEPARIN SODIUM
     Indication: Lung infiltration
     Dosage: UNK
     Route: 065

REACTIONS (1)
  - Drug ineffective [Fatal]
